FAERS Safety Report 7491538-1 (Version None)
Quarter: 2011Q2

REPORT INFORMATION
  Report Type: 
  Country: None (occurrence: None)
  Receive Date: 20110519
  Receipt Date: 20110506
  Transmission Date: 20111010
  Serious: Yes (Hospitalization, Other)
  Sender: FDA-Public Use
  Company Number: CA-ELI_LILLY_AND_COMPANY-CA201105001707

PATIENT
  Sex: Male
  Weight: 116 kg

DRUGS (17)
  1. ZYPREXA [Suspect]
     Dosage: 7.5 MG, EACH EVENING
  2. WELLBUTRIN [Concomitant]
  3. MEPERIDINE [Concomitant]
  4. BUSPAR [Concomitant]
  5. TEMAZ [Concomitant]
  6. RISPERDAL [Concomitant]
  7. ZOLOFT [Concomitant]
  8. SEROQUEL [Concomitant]
  9. TRAZODONE HCL [Concomitant]
  10. ZYPREXA [Suspect]
     Dosage: 5 MG, EACH EVENING
  11. ZYPREXA ZYDIS [Suspect]
     Dosage: 5 MG, EACH EVENING
  12. ELAVIL [Concomitant]
  13. CLONAZEPAM [Concomitant]
  14. PERPHENAZINE [Concomitant]
  15. ZYPREXA [Suspect]
     Indication: MAJOR DEPRESSION
     Dosage: 10 MG, EACH EVENING
  16. CLOMIPRAMINE HYDROCHLORIDE [Concomitant]
  17. ZYPREXA [Suspect]
     Dosage: 2.5 MG, EACH EVENING

REACTIONS (12)
  - CARDIAC FAILURE CONGESTIVE [None]
  - INTERMITTENT CLAUDICATION [None]
  - WEIGHT INCREASED [None]
  - DYSLIPIDAEMIA [None]
  - MYOCARDIAL INFARCTION [None]
  - NEPHROPATHY [None]
  - OEDEMA PERIPHERAL [None]
  - MYOCARDIAL ISCHAEMIA [None]
  - DIABETES MELLITUS [None]
  - BLOOD PRESSURE INCREASED [None]
  - PNEUMONIA [None]
  - OFF LABEL USE [None]
